FAERS Safety Report 8581332-2 (Version None)
Quarter: 2012Q3

REPORT INFORMATION
  Report Type: 
  Country: None (occurrence: None)
  Receive Date: 20120809
  Receipt Date: 20120808
  Transmission Date: 20120928
  Serious: Yes (Hospitalization)
  Sender: FDA-Public Use
  Company Number: PHHY2012BR060550

PATIENT
  Sex: Female

DRUGS (2)
  1. VENLAFAXINE [Concomitant]
     Dosage: UNK UKN, UNK
  2. CLOZAPINE [Suspect]
     Dosage: 300 MG, QD, AT NIGHT
     Route: 048

REACTIONS (2)
  - NERVOUSNESS [None]
  - MALAISE [None]
